FAERS Safety Report 23854770 (Version 2)
Quarter: 2024Q2

REPORT INFORMATION
  Report Type: Spontaneous
  Country: DE (occurrence: DE)
  Receive Date: 20240514
  Receipt Date: 20240522
  Transmission Date: 20240716
  Serious: Yes (Other)
  Sender: FDA-Public Use
  Company Number: None

PATIENT
  Age: 24 Year
  Sex: Male

DRUGS (2)
  1. DOXEPIN [Suspect]
     Active Substance: DOXEPIN
     Indication: Product used for unknown indication
     Dosage: 100 MILLIGRAM, QD
     Route: 048
     Dates: start: 20240313, end: 20240325
  2. HALOPERIDOL [Suspect]
     Active Substance: HALOPERIDOL
     Indication: Product used for unknown indication
     Dosage: 5 MILLIGRAM, QD
     Route: 048
     Dates: start: 20240313, end: 20240316

REACTIONS (12)
  - Urinary hesitation [Recovered/Resolved]
  - Dystonia [Recovered/Resolved]
  - Parkinsonism [Recovered/Resolved]
  - Gait disturbance [Recovered/Resolved]
  - Fine motor skill dysfunction [Recovered/Resolved]
  - Dyspnoea [Recovered/Resolved]
  - Oromandibular dystonia [Recovered/Resolved]
  - Muscle spasms [Recovered/Resolved]
  - Dysphagia [Recovered/Resolved]
  - Extrapyramidal disorder [Recovered/Resolved]
  - Generalised tonic-clonic seizure [Recovered/Resolved]
  - Tremor [Recovered/Resolved]

NARRATIVE: CASE EVENT DATE: 20240316
